FAERS Safety Report 5597604-X (Version None)
Quarter: 2008Q1

REPORT INFORMATION
  Report Type: 
  Country: None (occurrence: None)
  Receive Date: 20080121
  Receipt Date: 20080110
  Transmission Date: 20080703
  Serious: Yes (Life-Threatening, Hospitalization)
  Sender: FDA-Public Use
  Company Number: B0504057A

PATIENT
  Age: 22 Year
  Sex: Male

DRUGS (5)
  1. TRACRIUM [Suspect]
     Dosage: 35MG SINGLE DOSE
     Route: 042
     Dates: start: 20071120, end: 20071120
  2. DIPRIVAN [Suspect]
     Dosage: 200MG SINGLE DOSE
     Route: 042
     Dates: start: 20071120, end: 20071120
  3. SUFENTA [Suspect]
     Dosage: 15MCG SINGLE DOSE
     Route: 042
     Dates: start: 20071120, end: 20071120
  4. CEFAZOLIN [Suspect]
     Dosage: 2G PER DAY
     Route: 042
     Dates: start: 20071120, end: 20071120
  5. KETAMINE HCL [Suspect]
     Dosage: 10MG SINGLE DOSE
     Route: 042
     Dates: start: 20071120, end: 20071120

REACTIONS (2)
  - BRONCHOSPASM [None]
  - RASH [None]
